FAERS Safety Report 7258205-0 (Version None)
Quarter: 2011Q1

REPORT INFORMATION
  Report Type: 
  Country: None (occurrence: None)
  Receive Date: 20110129
  Receipt Date: 20100707
  Transmission Date: 20110831
  Serious: No
  Sender: FDA-Public Use
  Company Number: US-ABBOTT-10P-163-0655828-00

PATIENT
  Age: 55 Year
  Sex: Male

DRUGS (2)
  1. HUMIRA [Suspect]
     Indication: CROHN'S DISEASE
     Dates: start: 20100601
  2. HYDROCODONE [Concomitant]
     Indication: PAIN

REACTIONS (3)
  - CROHN'S DISEASE [None]
  - ABDOMINAL PAIN UPPER [None]
  - BACK PAIN [None]
